FAERS Safety Report 15400129 (Version 1)
Quarter: 2018Q4

REPORT INFORMATION
  Report Type: Spontaneous
  Country: US (occurrence: US)
  Receive Date: 20180919
  Receipt Date: 20180919
  Transmission Date: 20190204
  Serious: No
  Sender: FDA-Public Use
  Company Number: US-BION-007139

PATIENT
  Age: 75 Year
  Sex: Female

DRUGS (2)
  1. ZYRTEC [Suspect]
     Active Substance: CETIRIZINE HYDROCHLORIDE
     Indication: HYPERSENSITIVITY
     Dosage: 2 PILLS WITHIN 15 MINUTES
     Route: 048
  2. ESTROGEN NOS [Concomitant]
     Active Substance: ESTROGENS

REACTIONS (1)
  - Accidental overdose [Not Recovered/Not Resolved]
